FAERS Safety Report 10464896 (Version 1)
Quarter: 2014Q3

REPORT INFORMATION
  Report Type: Spontaneous
  Country: US (occurrence: US)
  Receive Date: 20140919
  Receipt Date: 20140919
  Transmission Date: 20150326
  Serious: Yes (Other)
  Sender: FDA-Public Use
  Company Number: US-AMGEN-USASP2014070682

PATIENT
  Age: 39 Year
  Sex: Female

DRUGS (1)
  1. ENBREL [Suspect]
     Active Substance: ETANERCEPT
     Indication: PRODUCT USED FOR UNKNOWN INDICATION
     Dosage: 50 MG, QWK
     Route: 065
     Dates: start: 20050101, end: 2006

REACTIONS (15)
  - Carpal tunnel syndrome [Recovered/Resolved]
  - Balance disorder [Not Recovered/Not Resolved]
  - Contusion [Not Recovered/Not Resolved]
  - Intervertebral disc protrusion [Not Recovered/Not Resolved]
  - Skin discolouration [Recovered/Resolved]
  - Burning sensation [Not Recovered/Not Resolved]
  - Trapezectomy [Recovered/Resolved]
  - Pain [Recovered/Resolved]
  - Fall [Recovered/Resolved]
  - Pruritus [Not Recovered/Not Resolved]
  - Fatigue [Not Recovered/Not Resolved]
  - Foot fracture [Recovered/Resolved]
  - Tremor [Not Recovered/Not Resolved]
  - Palpitations [Not Recovered/Not Resolved]
  - Postural tremor [Not Recovered/Not Resolved]

NARRATIVE: CASE EVENT DATE: 2005
